FAERS Safety Report 5147743-2 (Version None)
Quarter: 2006Q4

REPORT INFORMATION
  Report Type: 
  Country: None (occurrence: None)
  Receive Date: 20061110
  Receipt Date: 20051031
  Transmission Date: 20070319
  Serious: Yes (Other)
  Sender: FDA-Public Use
  Company Number: US-BAYER-200513129BWH

PATIENT
  Age: 67 Year
  Sex: Male
  Weight: 80 kg

DRUGS (5)
  1. SORAFENIB [Suspect]
     Indication: METASTATIC RENAL CELL CARCINOMA
     Dosage: TOTAL DAILY DOSE: 800 MG  UNIT DOSE: 200 MG
     Route: 048
     Dates: start: 20050629
  2. FLONASE [Concomitant]
     Indication: SEASONAL ALLERGY
     Route: 048
     Dates: start: 20040101
  3. MAXZIDE [Concomitant]
     Indication: HYPERTENSION
     Route: 048
     Dates: start: 20040727
  4. RABEPRAZOLE SODIUM [Concomitant]
     Indication: GASTROOESOPHAGEAL REFLUX DISEASE
     Route: 048
     Dates: start: 20040101
  5. HYTRIN [Concomitant]
     Indication: BENIGN PROSTATIC HYPERPLASIA
     Route: 048
     Dates: start: 20050901

REACTIONS (2)
  - PHOTOSENSITIVITY REACTION [None]
  - SQUAMOUS CELL CARCINOMA OF SKIN [None]
